FAERS Safety Report 6632120-5 (Version None)
Quarter: 2010Q1

REPORT INFORMATION
  Report Type: 
  Country: None (occurrence: None)
  Receive Date: 20100312
  Receipt Date: 20100223
  Transmission Date: 20100710
  Serious: Yes (Hospitalization, Other)
  Sender: FDA-Public Use
  Company Number: US-ROCHE-611177

PATIENT
  Sex: Female
  Weight: 74.8 kg

DRUGS (2)
  1. CAPECITABINE [Suspect]
     Indication: BREAST CANCER
     Dosage: DOSE: 4 TABS DAILY
     Route: 048
     Dates: start: 20080101
  2. CAPECITABINE [Suspect]
     Dosage: ONE WEEK ON ONE WEEK OFF
     Route: 048
     Dates: start: 20080519, end: 20100308

REACTIONS (11)
  - BRONCHITIS [None]
  - CAST APPLICATION [None]
  - DEHYDRATION [None]
  - DIZZINESS [None]
  - FALL [None]
  - HYPERCALCAEMIA [None]
  - PARAESTHESIA [None]
  - PLANTAR ERYTHEMA [None]
  - PNEUMONIA [None]
  - RENAL FAILURE [None]
  - SKIN FISSURES [None]
